FAERS Safety Report 16062953 (Version 1)
Quarter: 2019Q1

REPORT INFORMATION
  Report Type: Spontaneous
  Country: ES (occurrence: ES)
  Receive Date: 20190312
  Receipt Date: 20190312
  Transmission Date: 20190418
  Serious: Yes (Life-Threatening, Hospitalization)
  Sender: FDA-Public Use
  Company Number: ES-ABBVIE-19K-144-2696240-00

PATIENT
  Age: 31 Year
  Sex: Female
  Weight: 51 kg

DRUGS (2)
  1. HUMIRA [Suspect]
     Active Substance: ADALIMUMAB
     Indication: UVEITIS
     Route: 058
     Dates: start: 201901, end: 201903
  2. HUMIRA [Suspect]
     Active Substance: ADALIMUMAB
     Indication: NEUROSARCOIDOSIS

REACTIONS (9)
  - Asthenia [Recovering/Resolving]
  - C-reactive protein increased [Unknown]
  - Pleocytosis [Unknown]
  - Red blood cell sedimentation rate increased [Unknown]
  - Neurosarcoidosis [Recovering/Resolving]
  - Off label use [Unknown]
  - Polydipsia [Recovering/Resolving]
  - Arthralgia [Recovering/Resolving]
  - Headache [Recovering/Resolving]

NARRATIVE: CASE EVENT DATE: 201902
